FAERS Safety Report 11930884 (Version 2)
Quarter: 2016Q1

REPORT INFORMATION
  Report Type: Spontaneous
  Country: US (occurrence: US)
  Receive Date: 20160120
  Receipt Date: 20160215
  Transmission Date: 20160526
  Serious: No
  Sender: FDA-Public Use
  Company Number: US-009507513-1601USA001231

PATIENT
  Age: 14 Year
  Sex: Female
  Weight: 57 kg

DRUGS (1)
  1. IMPLANON [Suspect]
     Active Substance: ETONOGESTREL
     Dosage: 68 MG, 1 ROD, EVERY THREE YEARS
     Route: 059
     Dates: start: 20121120, end: 201602

REACTIONS (4)
  - Incorrect drug administration duration [Unknown]
  - Complication associated with device [Recovered/Resolved]
  - Peripheral swelling [Unknown]
  - Contusion [Unknown]

NARRATIVE: CASE EVENT DATE: 20121120
